FAERS Safety Report 11813800 (Version 1)
Quarter: 2015Q4

REPORT INFORMATION
  Report Type: Spontaneous
  Country: US (occurrence: US)
  Receive Date: 20151209
  Receipt Date: 20151209
  Transmission Date: 20160305
  Serious: No
  Sender: FDA-Public Use
  Company Number: US-MISSION PHARMACAL COMPANY-1045246

PATIENT
  Age: 75 Year
  Sex: Female

DRUGS (1)
  1. THIOLA [Suspect]
     Active Substance: TIOPRONIN
     Indication: NEPHROLITHIASIS
     Route: 065
     Dates: start: 20141118

REACTIONS (4)
  - Decreased appetite [Unknown]
  - Hypercoagulation [Unknown]
  - Dysgeusia [Unknown]
  - Stenosis [Unknown]
